FAERS Safety Report 19320704 (Version 1)
Quarter: 2021Q2

REPORT INFORMATION
  Report Type: Spontaneous
  Country: US (occurrence: US)
  Receive Date: 20210527
  Receipt Date: 20210527
  Transmission Date: 20210717
  Serious: No
  Sender: FDA-Public Use
  Company Number: US-PFIZER INC-2019358943

PATIENT
  Age: 59 Year
  Sex: Male

DRUGS (4)
  1. LYRICA [Suspect]
     Active Substance: PREGABALIN
     Indication: RHEUMATOID ARTHRITIS
     Dosage: 400 MG, DAILY (ONE IN THE MORNING, ONE AT LUNCH TIME, AND TWO BEFORE BEDTIME)
  2. LYRICA [Suspect]
     Active Substance: PREGABALIN
     Indication: OSTEOARTHRITIS
  3. LYRICA [Suspect]
     Active Substance: PREGABALIN
     Indication: POLYMYALGIA RHEUMATICA
  4. LYRICA [Suspect]
     Active Substance: PREGABALIN
     Indication: IMMUNOSUPPRESSANT DRUG THERAPY

REACTIONS (2)
  - Off label use [Unknown]
  - Restless legs syndrome [Unknown]
